FAERS Safety Report 6603222-4 (Version None)
Quarter: 2010Q1

REPORT INFORMATION
  Report Type: 
  Country: None (occurrence: None)
  Receive Date: 20100226
  Receipt Date: 20100222
  Transmission Date: 20100710
  Serious: Yes (Death, Hospitalization)
  Sender: FDA-Public Use
  Company Number: US-ASTRAZENECA-2010SE07562

PATIENT
  Age: 31973 Day
  Sex: Female
  Weight: 49.9 kg

DRUGS (7)
  1. SEROQUEL [Suspect]
     Route: 048
     Dates: start: 20091201, end: 20091210
  2. BLOOD PRESSURE MEDICATION [Suspect]
  3. DIURETICS [Concomitant]
  4. XANAX [Concomitant]
  5. DARVOCET [Concomitant]
  6. PERCOCET [Concomitant]
  7. MORPHINE [Concomitant]
     Route: 042

REACTIONS (6)
  - EATING DISORDER [None]
  - HYPOTENSION [None]
  - OVERDOSE [None]
  - PNEUMONIA ASPIRATION [None]
  - SEPTIC SHOCK [None]
  - UNRESPONSIVE TO STIMULI [None]
